FAERS Safety Report 8261656-9 (Version None)
Quarter: 2012Q2

REPORT INFORMATION
  Report Type: 
  Country: None (occurrence: None)
  Receive Date: 20120405
  Receipt Date: 20120405
  Transmission Date: 20120825
  Serious: No
  Sender: FDA-Public Use
  Company Number: None

PATIENT
  Age: 54 Year
  Sex: Female
  Weight: 67.585 kg

DRUGS (8)
  1. ESTERIFIED ESTROGENS [Suspect]
     Indication: MENOPAUSAL SYMPTOMS
     Dosage: 1 TABLET
     Route: 048
     Dates: start: 20120305, end: 20120401
  2. ESTERIFIED ESTROGENS [Suspect]
     Indication: MUSCLE ATROPHY
     Dosage: 1 TABLET
     Route: 048
     Dates: start: 20120305, end: 20120401
  3. ESTERIFIED ESTROGENS [Suspect]
     Indication: INSOMNIA
     Dosage: 1 TABLET
     Route: 048
     Dates: start: 20120305, end: 20120401
  4. ESTERIFIED ESTROGENS [Suspect]
     Indication: LIBIDO DECREASED
     Dosage: 1 TABLET
     Route: 048
     Dates: start: 20120305, end: 20120401
  5. MEDROXYPROGESTERONE [Suspect]
     Indication: INSOMNIA
     Dosage: 1 TABLET
     Route: 048
     Dates: start: 20120305, end: 20120401
  6. MEDROXYPROGESTERONE [Suspect]
     Indication: LIBIDO DECREASED
     Dosage: 1 TABLET
     Route: 048
     Dates: start: 20120305, end: 20120401
  7. MEDROXYPROGESTERONE [Suspect]
     Indication: MUSCLE ATROPHY
     Dosage: 1 TABLET
     Route: 048
     Dates: start: 20120305, end: 20120401
  8. MEDROXYPROGESTERONE [Suspect]
     Indication: MENOPAUSAL SYMPTOMS
     Dosage: 1 TABLET
     Route: 048
     Dates: start: 20120305, end: 20120401

REACTIONS (5)
  - SKIN DISORDER [None]
  - RASH MORBILLIFORM [None]
  - PURULENCE [None]
  - ACNE [None]
  - ERYTHEMA [None]
